FAERS Safety Report 7460441-5 (Version None)
Quarter: 2011Q2

REPORT INFORMATION
  Report Type: 
  Country: None (occurrence: None)
  Receive Date: 20110505
  Receipt Date: 20110428
  Transmission Date: 20111010
  Serious: Yes (Other)
  Sender: FDA-Public Use
  Company Number: B0716512A

PATIENT
  Sex: Male
  Weight: 20 kg

DRUGS (5)
  1. LASTET [Suspect]
     Indication: STEM CELL TRANSPLANT
     Dosage: 160MGM2 PER DAY
     Route: 042
     Dates: start: 20080708, end: 20080711
  2. FRAGMIN [Concomitant]
     Dosage: 1300IU PER DAY
     Route: 042
     Dates: start: 20080707, end: 20080815
  3. ALKERAN [Suspect]
     Indication: STEM CELL TRANSPLANT
     Dosage: 80MGM2 PER DAY
     Dates: start: 20080710, end: 20080711
  4. PARAPLATIN [Suspect]
     Indication: STEM CELL TRANSPLANT
     Dosage: 320MGM2 PER DAY
     Route: 042
     Dates: start: 20080708, end: 20080711
  5. GASTER [Concomitant]
     Dosage: 10MG PER DAY
     Route: 042
     Dates: start: 20080711, end: 20080814

REACTIONS (1)
  - MUCOUS MEMBRANE DISORDER [None]
